FAERS Safety Report 23492246 (Version 1)
Quarter: 2024Q1

REPORT INFORMATION
  Report Type: Spontaneous
  Country: GB (occurrence: GB)
  Receive Date: 20240207
  Receipt Date: 20240207
  Transmission Date: 20240410
  Serious: Yes (Other)
  Sender: FDA-Public Use
  Company Number: None

PATIENT
  Age: 61 Year
  Sex: Female
  Weight: 79 kg

DRUGS (11)
  1. AMLODIPINE [Suspect]
     Active Substance: AMLODIPINE BESYLATE
     Route: 065
     Dates: start: 20230524
  2. VAGIRUX [Concomitant]
     Dates: start: 20230524
  3. BECONASE AQ [Concomitant]
     Active Substance: BECLOMETHASONE DIPROPIONATE MONOHYDRATE
     Dosage: ONE SPRAY TO BE USED IN EACH NOSTRIL TWICE A DAY,
     Route: 045
     Dates: start: 20240110
  4. POLYETHYLENE GLYCOL 3350\POTASSIUM CHLORIDE\SODIUM BICARBONATE\SODIUM [Concomitant]
     Active Substance: POLYETHYLENE GLYCOL 3350\POTASSIUM CHLORIDE\SODIUM BICARBONATE\SODIUM CHLORIDE
     Dosage: DISSOLVE CONTENTS OF ONE SACHET IN HALF A GLASS...
     Dates: start: 20230524
  5. CITALOPRAM [Concomitant]
     Active Substance: CITALOPRAM HYDROBROMIDE
     Dates: start: 20230524
  6. ZEROBASE [Concomitant]
     Dosage: USE AS DIRECTED
     Dates: start: 20230524
  7. LORATADINE [Concomitant]
     Active Substance: LORATADINE
     Dosage: WHEN REQUIRED,
     Dates: start: 20230524
  8. VENTOLIN [Concomitant]
     Active Substance: ALBUTEROL SULFATE
     Dosage: ONE OR TWO DOSES/PUFFS TO BE INHALED FOUR TIMES...
     Route: 055
     Dates: start: 20230524
  9. ATORVASTATIN [Concomitant]
     Active Substance: ATORVASTATIN
     Dosage: AT NIGHT. IF THIS IS THE FIRST YEAR OF...,
     Dates: start: 20230524
  10. UMECLIDINIUM BROMIDE\VILANTEROL TRIFENATATE [Concomitant]
     Active Substance: UMECLIDINIUM BROMIDE\VILANTEROL TRIFENATATE
     Dates: start: 20230524
  11. MOMETASONE [Concomitant]
     Active Substance: MOMETASONE
     Dosage: TIME INTERVAL: AS NECESSARY: APPLY DAILY WHEN REQUIRED AS DIRECTED
     Dates: start: 20230524

REACTIONS (1)
  - Joint swelling [Recovering/Resolving]
